FAERS Safety Report 24457328 (Version 2)
Quarter: 2024Q4

REPORT INFORMATION
  Report Type: Spontaneous
  Country: JP (occurrence: JP)
  Receive Date: 20241018
  Receipt Date: 20241210
  Transmission Date: 20250115
  Serious: Yes (Life-Threatening, Hospitalization)
  Sender: ROCHE
  Company Number: JP-CHUGAI-2024035576AA

PATIENT
  Age: 9 Decade
  Sex: Female
  Weight: 47.8 kg

DRUGS (3)
  1. TECENTRIQ [Suspect]
     Active Substance: ATEZOLIZUMAB
     Indication: Triple negative breast cancer
     Dosage: 840 UNK, ONCE/MONTH
     Route: 042
     Dates: start: 20240724, end: 20240918
  2. ABRAXANE [Suspect]
     Active Substance: PACLITAXEL
     Indication: Triple negative breast cancer
     Dosage: 100 MILLIGRAM/SQ. METER, ONCE/WEEK
     Route: 042
     Dates: start: 20240724, end: 20240918
  3. ABRAXANE [Suspect]
     Active Substance: PACLITAXEL
     Route: 042

REACTIONS (1)
  - Interstitial lung disease [Recovering/Resolving]

NARRATIVE: CASE EVENT DATE: 20240923
